FAERS Safety Report 18013297 (Version 1)
Quarter: 2020Q3

REPORT INFORMATION
  Report Type: Spontaneous
  Country: JP (occurrence: JP)
  Receive Date: 20200713
  Receipt Date: 20200713
  Transmission Date: 20201103
  Serious: Yes (Other)
  Sender: FDA-Public Use
  Company Number: JP-BAUSCH-BL-2020-019777

PATIENT
  Age: 83 Year
  Sex: Female

DRUGS (3)
  1. VISUDYNE [Suspect]
     Active Substance: VERTEPORFIN
     Indication: POLYPOIDAL CHOROIDAL VASCULOPATHY
     Dosage: (1/ (6 MG/M2, 689 NM, 600 MW/CM2)
     Route: 042
  2. EYLEA [Concomitant]
     Active Substance: AFLIBERCEPT
     Indication: PRODUCT USED FOR UNKNOWN INDICATION
  3. VISUDYNE [Suspect]
     Active Substance: VERTEPORFIN
     Indication: PRODUCT USE IN UNAPPROVED INDICATION

REACTIONS (2)
  - Choroidal neovascularisation [Unknown]
  - Product use in unapproved indication [Unknown]
